FAERS Safety Report 21924073 (Version 2)
Quarter: 2025Q1

REPORT INFORMATION
  Report Type: Spontaneous
  Country: US (occurrence: US)
  Receive Date: 20230130
  Receipt Date: 20250227
  Transmission Date: 20250409
  Serious: No
  Sender: UCB
  Company Number: US-UCBSA-2022012125

PATIENT
  Age: 18 Month
  Sex: Male

DRUGS (3)
  1. KEPPRA [Suspect]
     Active Substance: LEVETIRACETAM
     Indication: Epilepsy
  2. KEPPRA [Suspect]
     Active Substance: LEVETIRACETAM
     Indication: Seizure
  3. CLOBAZAM [Suspect]
     Active Substance: CLOBAZAM
     Indication: Epilepsy

REACTIONS (1)
  - Therapeutic product effect incomplete [Unknown]
